FAERS Safety Report 19779793 (Version 2)
Quarter: 2022Q1

REPORT INFORMATION
  Report Type: Spontaneous
  Country: US (occurrence: US)
  Receive Date: 20210902
  Receipt Date: 20220223
  Transmission Date: 20220423
  Serious: No
  Sender: FDA-Public Use
  Company Number: US-PFIZER INC-202100986743

PATIENT
  Age: 56 Year
  Sex: Female

DRUGS (2)
  1. CHANTIX [Suspect]
     Active Substance: VARENICLINE TARTRATE
     Dosage: UNK
     Dates: start: 2019
  2. KLONOPIN [Concomitant]
     Active Substance: CLONAZEPAM
     Dosage: UP TO TWO PER DAY

REACTIONS (9)
  - Weight decreased [Unknown]
  - Memory impairment [Unknown]
  - Feeling abnormal [Unknown]
  - Back pain [Unknown]
  - Vomiting [Unknown]
  - Visual impairment [Unknown]
  - Gait disturbance [Unknown]
  - Agoraphobia [Unknown]
  - Abnormal behaviour [Unknown]

NARRATIVE: CASE EVENT DATE: 20190101
